FAERS Safety Report 14236851 (Version 7)
Quarter: 2019Q4

REPORT INFORMATION
  Report Type: Report from Study
  Country: CA (occurrence: CA)
  Receive Date: 20171129
  Receipt Date: 20191010
  Transmission Date: 20200122
  Serious: Yes (Other)
  Sender: FDA-Public Use
  Company Number: CA-BRISTOL-MYERS SQUIBB COMPANY-BMS-2017-033151

PATIENT
  Age: 57 Year
  Sex: Female

DRUGS (1)
  1. ABATACEPT [Suspect]
     Active Substance: ABATACEPT
     Indication: RHEUMATOID ARTHRITIS
     Dosage: 500 MG, Q4WK
     Route: 042
     Dates: start: 20140416

REACTIONS (11)
  - Musculoskeletal pain [Unknown]
  - Nasopharyngitis [Recovering/Resolving]
  - Product dose omission [Unknown]
  - Pyrexia [Recovering/Resolving]
  - Wound haemorrhage [Unknown]
  - Lower respiratory tract infection [Recovering/Resolving]
  - Localised infection [Recovered/Resolved]
  - Neck pain [Unknown]
  - Fatigue [Unknown]
  - Arthralgia [Not Recovered/Not Resolved]
  - Pain [Unknown]

NARRATIVE: CASE EVENT DATE: 20171102
